FAERS Safety Report 8380787-6 (Version None)
Quarter: 2012Q2

REPORT INFORMATION
  Report Type: 
  Country: None (occurrence: None)
  Receive Date: 20120523
  Receipt Date: 20120512
  Transmission Date: 20120825
  Serious: Yes (Other)
  Sender: FDA-Public Use
  Company Number: US-PERRIGO-12US004281

PATIENT
  Age: 52 Year
  Sex: Male

DRUGS (2)
  1. ADVIL PM [Suspect]
     Indication: INSOMNIA
     Dosage: 6 CAPLETS, OVER 24 HOURS
     Route: 048
     Dates: start: 20120512, end: 20120512
  2. IBUPROFEN/DIPHENHYDRAMINE HYDROCHLORIDE [Suspect]
     Indication: INSOMNIA
     Dosage: 12 TABLETS, OVER 24 HOURS
     Route: 048
     Dates: start: 20120512, end: 20120512

REACTIONS (4)
  - FAECES DISCOLOURED [None]
  - LOSS OF CONSCIOUSNESS [None]
  - FAECAL INCONTINENCE [None]
  - OVERDOSE [None]
